FAERS Safety Report 25044852 (Version 3)
Quarter: 2025Q2

REPORT INFORMATION
  Report Type: Report from Study
  Country: US (occurrence: US)
  Receive Date: 20250306
  Receipt Date: 20250422
  Transmission Date: 20250716
  Serious: Yes (Hospitalization, Other)
  Sender: SUNOVION
  Company Number: US-SUMITOMO PHARMA SWITZERLAND GMBH-2025SPA002500

PATIENT

DRUGS (1)
  1. ORGOVYX [Suspect]
     Active Substance: RELUGOLIX
     Indication: Prostate cancer
     Dosage: 120 MG, QD
     Route: 048
     Dates: start: 20241225

REACTIONS (6)
  - Peripheral arterial occlusive disease [Unknown]
  - Cardiac failure congestive [Unknown]
  - Dizziness [Unknown]
  - Anaemia [Unknown]
  - Hot flush [Recovering/Resolving]
  - Incorrect dose administered [Unknown]
